FAERS Safety Report 18436999 (Version 1)
Quarter: 2020Q4

REPORT INFORMATION
  Report Type: Spontaneous
  Country: US (occurrence: US)
  Receive Date: 20201028
  Receipt Date: 20201028
  Transmission Date: 20210114
  Serious: Yes (Hospitalization)
  Sender: FDA-Public Use
  Company Number: US-CVS-2093242

PATIENT
  Sex: Male

DRUGS (1)
  1. PAIN RELIEVER FEVER REDUCER EXTRA STRENGTH [Suspect]
     Active Substance: ACETAMINOPHEN
     Route: 048
     Dates: start: 20201001, end: 20201001

REACTIONS (2)
  - Rash pruritic [Recovered/Resolved]
  - Abdominal pain upper [Recovered/Resolved]
